FAERS Safety Report 23138956 (Version 1)
Quarter: 2023Q4

REPORT INFORMATION
  Report Type: Spontaneous
  Country: ES (occurrence: ES)
  Receive Date: 20231102
  Receipt Date: 20231102
  Transmission Date: 20240109
  Serious: Yes (Other)
  Sender: FDA-Public Use
  Company Number: None

PATIENT
  Sex: Male

DRUGS (1)
  1. FINASTERIDE [Suspect]
     Active Substance: FINASTERIDE
     Indication: Alopecia
     Dosage: DURATION OF INTAKE: 3+ YEARS / 1-3 YEARS
     Dates: start: 2010

REACTIONS (11)
  - Emotional poverty [Unknown]
  - Impaired quality of life [Unknown]
  - Product communication issue [Unknown]
  - Diarrhoea [Unknown]
  - Social problem [Unknown]
  - Dry eye [Unknown]
  - Dry skin [Unknown]
  - Loss of libido [Unknown]
  - Erectile dysfunction [Unknown]
  - Fatigue [Unknown]
  - Abdominal discomfort [Unknown]
